FAERS Safety Report 5566572-9 (Version None)
Quarter: 2007Q4

REPORT INFORMATION
  Report Type: 
  Country: None (occurrence: None)
  Receive Date: 20071219
  Receipt Date: 20071213
  Transmission Date: 20080405
  Serious: Yes (Hospitalization)
  Sender: FDA-Public Use
  Company Number: US-JNJFOC-20070903128

PATIENT
  Sex: Male
  Weight: 72.58 kg

DRUGS (5)
  1. RISPERDAL CONSTA [Suspect]
     Route: 030
  2. RISPERDAL CONSTA [Suspect]
     Indication: SCHIZOAFFECTIVE DISORDER
     Route: 030
  3. SEROQUEL [Suspect]
     Route: 048
  4. SEROQUEL [Suspect]
     Indication: SCHIZOAFFECTIVE DISORDER
     Route: 048
  5. BENADRYL [Concomitant]
     Indication: INSOMNIA

REACTIONS (5)
  - DEPRESSION [None]
  - DYSPHORIA [None]
  - FLIGHT OF IDEAS [None]
  - INSOMNIA [None]
  - SELF-INJURIOUS IDEATION [None]
